FAERS Safety Report 5384452-9 (Version None)
Quarter: 2007Q3

REPORT INFORMATION
  Report Type: 
  Country: None (occurrence: None)
  Receive Date: 20070711
  Receipt Date: 20070630
  Transmission Date: 20080115
  Serious: Yes (Other)
  Sender: FDA-Public Use
  Company Number: US-PFIZER INC-2007031522

PATIENT
  Age: 44 Year
  Sex: Male
  Weight: 112 kg

DRUGS (11)
  1. CHANTIX [Suspect]
     Indication: EX-SMOKER
     Dates: start: 20070201, end: 20070301
  2. HUMULIN N [Concomitant]
     Indication: DIABETES MELLITUS
  3. HUMULIN 70/30 [Concomitant]
     Indication: DIABETES MELLITUS
  4. LIPITOR [Concomitant]
  5. DURAGESIC-100 [Concomitant]
  6. NEURONTIN [Concomitant]
  7. VICODIN [Concomitant]
  8. VALIUM [Concomitant]
  9. VASOTEC [Concomitant]
  10. ZANTAC [Concomitant]
  11. OSCAL [Concomitant]

REACTIONS (1)
  - BLOOD GLUCOSE INCREASED [None]
